FAERS Safety Report 8791267 (Version 1)
Quarter: 2012Q4

REPORT INFORMATION
  Report Type: Spontaneous
  Country: TR (occurrence: None)
  Receive Date: 20120911
  Receipt Date: 20120911
  Transmission Date: 20130627
  Serious: Yes (Hospitalization, Other)
  Sender: FDA-Public Use
  Company Number: VAL_00819_2012

PATIENT
  Age: 20 Year
  Sex: Female

DRUGS (1)
  1. CARBAMAZEPINE [Suspect]
     Indication: PRODUCT USED FOR UNKNOWN INDICATION
     Dosage: (ingestion of 4,400 mg)

REACTIONS (6)
  - Suicide attempt [None]
  - Somnolence [None]
  - Haemodialysis [None]
  - Incorrect dose administered [None]
  - Toxicity to various agents [None]
  - Exposure during pregnancy [None]
